FAERS Safety Report 12651490 (Version 1)
Quarter: 2016Q3

REPORT INFORMATION
  Report Type: Spontaneous
  Country: IT (occurrence: IT)
  Receive Date: 20160815
  Receipt Date: 20160815
  Transmission Date: 20161109
  Serious: Yes (Hospitalization)
  Sender: FDA-Public Use
  Company Number: IT-TEVA-683818ACC

PATIENT
  Age: 75 Year
  Sex: Female

DRUGS (1)
  1. LITHIUM CARBONATE. [Suspect]
     Active Substance: LITHIUM CARBONATE

REACTIONS (6)
  - Toxicity to various agents [Unknown]
  - Nephrogenic diabetes insipidus [Unknown]
  - Asthenia [Unknown]
  - Dysarthria [Unknown]
  - Osmotic demyelination syndrome [Unknown]
  - Accidental overdose [Unknown]
